FAERS Safety Report 8270041-5 (Version None)
Quarter: 2012Q2

REPORT INFORMATION
  Report Type: 
  Country: None (occurrence: None)
  Receive Date: 20120410
  Receipt Date: 20120404
  Transmission Date: 20120825
  Serious: Yes (Other)
  Sender: FDA-Public Use
  Company Number: NL-JNJFOC-20120402692

PATIENT

DRUGS (5)
  1. HEPARIN SODIUM [Concomitant]
     Indication: PERCUTANEOUS CORONARY INTERVENTION
     Route: 040
  2. REOPRO [Suspect]
     Indication: STENT PLACEMENT
     Route: 042
  3. CLOPIDOGREL [Concomitant]
     Indication: PERCUTANEOUS CORONARY INTERVENTION
     Route: 065
  4. REOPRO [Suspect]
     Route: 042
  5. ASPIRIN [Concomitant]
     Indication: PERCUTANEOUS CORONARY INTERVENTION
     Route: 050

REACTIONS (1)
  - THROMBOSIS IN DEVICE [None]
